FAERS Safety Report 7916456-3 (Version None)
Quarter: 2011Q4

REPORT INFORMATION
  Report Type: 
  Country: None (occurrence: None)
  Receive Date: 20111114
  Receipt Date: 20111107
  Transmission Date: 20120403
  Serious: Yes (Other)
  Sender: FDA-Public Use
  Company Number: AUR-APL-2011-05759

PATIENT
  Age: 77 Year
  Sex: Female
  Weight: 82.54 kg

DRUGS (4)
  1. METOPROLOL TARTRATE [Suspect]
     Indication: HYPERTENSION
     Dosage: (25 MG, 1 D), (50 MG, 1 D),
     Dates: start: 20090101
  2. RANITIDINE HYDROCHLORIDE [Concomitant]
  3. LIPITOR [Suspect]
     Indication: BLOOD TRIGLYCERIDES INCREASED
     Dosage: (1 0 MG, 1 D), ORAL
     Route: 048
     Dates: start: 20090101
  4. LIPITOR [Suspect]
     Indication: BLOOD CHOLESTEROL INCREASED
     Dosage: (1 0 MG, 1 D), ORAL
     Route: 048
     Dates: start: 20090101

REACTIONS (1)
  - HYPERTENSION [None]
